FAERS Safety Report 16118828 (Version 2)
Quarter: 2019Q3

REPORT INFORMATION
  Report Type: Report from Study
  Country: CA (occurrence: CA)
  Receive Date: 20190326
  Receipt Date: 20190702
  Transmission Date: 20191004
  Serious: Yes (Hospitalization, Other)
  Sender: FDA-Public Use
  Company Number: CA-JNJFOC-20190335234

PATIENT
  Age: 58 Year
  Sex: Male

DRUGS (1)
  1. STELARA [Suspect]
     Active Substance: USTEKINUMAB
     Indication: PSORIASIS
     Dosage: STRENGTH = 90 MG
     Route: 058
     Dates: start: 20180824

REACTIONS (4)
  - Knee operation [Unknown]
  - Pneumonia [Recovered/Resolved]
  - Arthritis infective [Unknown]
  - Post procedural infection [Unknown]

NARRATIVE: CASE EVENT DATE: 201902
